FAERS Safety Report 6894037-0 (Version None)
Quarter: 2010Q3

REPORT INFORMATION
  Report Type: 
  Country: None (occurrence: None)
  Receive Date: 20100802
  Receipt Date: 20100720
  Transmission Date: 20110219
  Serious: Yes (Other)
  Sender: FDA-Public Use
  Company Number: CN-JNJFOC-20100708794

PATIENT
  Age: 53 Year
  Sex: Female

DRUGS (1)
  1. NIZORAL [Suspect]
     Indication: ONYCHOMYCOSIS
     Dosage: USED 3 PACKAGES IN TOTAL
     Route: 048

REACTIONS (4)
  - DIARRHOEA [None]
  - LIVER FUNCTION TEST ABNORMAL [None]
  - LIVER INJURY [None]
  - PANCREATITIS [None]
